FAERS Safety Report 20371782 (Version 2)
Quarter: 2022Q1

REPORT INFORMATION
  Report Type: Spontaneous
  Country: SK (occurrence: SK)
  Receive Date: 20220124
  Receipt Date: 20220311
  Transmission Date: 20220423
  Serious: Yes (Hospitalization)
  Sender: FDA-Public Use
  Company Number: SK-Zentiva-2022-ZT-000513

PATIENT
  Age: 22 Year
  Sex: Male

DRUGS (5)
  1. DICLOFENAC [Suspect]
     Active Substance: DICLOFENAC
     Indication: Pain
     Route: 065
  2. COCAINE [Suspect]
     Active Substance: COCAINE
     Indication: Product used for unknown indication
     Dosage: 1 DOSE (BY THE TECHNIQUE OF ^SNIFFING^, I.E. INHALING THE POWDERED DRUG THROUGH THE NASAL PASSAGES)
     Route: 045
  3. IBUPROFEN [Suspect]
     Active Substance: IBUPROFEN
     Indication: Headache
     Route: 065
  4. ALCOHOL [Suspect]
     Active Substance: ALCOHOL
     Indication: Product used for unknown indication
     Dosage: DRANK 6 GLASSES OF BEER, 3 GLASSES OF BEER ALL 0.5 LITERS EACH (9 BEERS 0.5L IN TOTAL WITHIN 2 DAYS)
     Route: 048
  5. ALPRAZOLAM [Suspect]
     Active Substance: ALPRAZOLAM
     Indication: Anxiety
     Route: 065

REACTIONS (1)
  - Dystonia [Recovered/Resolved]
